FAERS Safety Report 16236872 (Version 3)
Quarter: 2019Q2

REPORT INFORMATION
  Report Type: Spontaneous
  Country: IN (occurrence: IN)
  Receive Date: 20190425
  Receipt Date: 20190515
  Transmission Date: 20190711
  Serious: Yes (Other)
  Sender: FDA-Public Use
  Company Number: IN-ACCORD-123840

PATIENT
  Sex: Female

DRUGS (4)
  1. FOLINIC ACID [Concomitant]
     Active Substance: LEUCOVORIN
     Indication: B PRECURSOR TYPE ACUTE LEUKAEMIA
     Dosage: EVERY 6 H
  2. ONDANSETRON [Concomitant]
     Active Substance: ONDANSETRON
     Indication: PROPHYLAXIS
  3. METHOTREXATE. [Suspect]
     Active Substance: METHOTREXATE
     Indication: ACUTE LYMPHOCYTIC LEUKAEMIA
     Dosage: HIGH-DOSE, 3 G/M2 IN 500 ML 0.9% NORMAL SALINE FOR 24 H.
     Route: 051
  4. DEXAMETHASONE. [Concomitant]
     Active Substance: DEXAMETHASONE

REACTIONS (8)
  - Hypersensitivity [Recovered/Resolved]
  - Chest pain [Recovering/Resolving]
  - Abdominal pain [Recovering/Resolving]
  - Cold sweat [Recovering/Resolving]
  - Cyanosis [Recovering/Resolving]
  - Peripheral coldness [Recovering/Resolving]
  - Tachycardia [Recovering/Resolving]
  - Blood pressure systolic decreased [Recovering/Resolving]
